FAERS Safety Report 14371606 (Version 1)
Quarter: 2018Q1

REPORT INFORMATION
  Report Type: Spontaneous
  Country: US (occurrence: US)
  Receive Date: 20180109
  Receipt Date: 20180109
  Transmission Date: 20180509
  Serious: Yes (Life-Threatening)
  Sender: FDA-Public Use
  Company Number: None

PATIENT
  Sex: Female
  Weight: 99 kg

DRUGS (2)
  1. METRONIDAZOLE 500 MG TABLET [Suspect]
     Active Substance: METRONIDAZOLE
     Indication: BACTERIAL INFECTION
     Route: 048
     Dates: start: 20171103, end: 20171103
  2. VITAMINS [Concomitant]
     Active Substance: VITAMINS

REACTIONS (5)
  - Sneezing [None]
  - Swelling [None]
  - Urticaria [None]
  - Disorientation [None]
  - Anaphylactic shock [None]

NARRATIVE: CASE EVENT DATE: 20180103
